FAERS Safety Report 7769009-4 (Version None)
Quarter: 2011Q3

REPORT INFORMATION
  Report Type: 
  Country: None (occurrence: None)
  Receive Date: 20110922
  Receipt Date: 20110428
  Transmission Date: 20111222
  Serious: No
  Sender: FDA-Public Use
  Company Number: US-ASTRAZENECA-2011SE26050

PATIENT
  Age: 12 Year
  Sex: Female
  Weight: 62.1 kg

DRUGS (1)
  1. SEROQUEL [Suspect]
     Indication: ATTENTION DEFICIT/HYPERACTIVITY DISORDER
     Route: 048
     Dates: start: 20110101

REACTIONS (3)
  - INCREASED APPETITE [None]
  - WEIGHT INCREASED [None]
  - OFF LABEL USE [None]
